FAERS Safety Report 10514264 (Version 1)
Quarter: 2014Q4

REPORT INFORMATION
  Report Type: Spontaneous
  Country: US (occurrence: US)
  Receive Date: 20141013
  Receipt Date: 20141013
  Transmission Date: 20150528
  Serious: No
  Sender: FDA-Public Use
  Company Number: US-BAYER-2014-149082

PATIENT
  Age: 64 Year
  Sex: Female

DRUGS (4)
  1. ALEVE [Suspect]
     Active Substance: NAPROXEN SODIUM
     Dosage: UNK, UNK UNK
  2. SULINDAC. [Suspect]
     Active Substance: SULINDAC
     Dosage: UNK UNK, UNK
  3. MOBIC [Suspect]
     Active Substance: MELOXICAM
     Dosage: UNK UNK, UNK
  4. VIOXX [Suspect]
     Active Substance: ROFECOXIB
     Dosage: UNK UNK, UNK

REACTIONS (2)
  - Diarrhoea [Unknown]
  - Nausea [Unknown]
